FAERS Safety Report 23923513 (Version 1)
Quarter: 2024Q2

REPORT INFORMATION
  Report Type: Spontaneous
  Country: GB (occurrence: GB)
  Receive Date: 20240531
  Receipt Date: 20240531
  Transmission Date: 20240716
  Serious: Yes (Hospitalization)
  Sender: FDA-Public Use
  Company Number: GB-NOVITIUMPHARMA-2024GBNVP00967

PATIENT
  Age: 33 Year
  Sex: Female

DRUGS (3)
  1. OXYBUTYNIN CHLORIDE [Suspect]
     Active Substance: OXYBUTYNIN CHLORIDE
     Indication: Hypertonic bladder
  2. ARIPIPRAZOLE [Concomitant]
     Active Substance: ARIPIPRAZOLE
     Indication: Hypertonic bladder
  3. DESMOPRESSIN [Concomitant]
     Active Substance: DESMOPRESSIN
     Indication: Hypertonic bladder

REACTIONS (1)
  - Drug ineffective [Unknown]
